FAERS Safety Report 9496301 (Version 2)
Quarter: 2013Q3

REPORT INFORMATION
  Report Type: Spontaneous
  Country: US (occurrence: US)
  Receive Date: 20130904
  Receipt Date: 20130923
  Transmission Date: 20140515
  Serious: Yes (Hospitalization)
  Sender: FDA-Public Use
  Company Number: US-BAYER-2013-106614

PATIENT
  Age: 32 Year
  Sex: Female

DRUGS (9)
  1. YASMIN [Suspect]
  2. VENLAFAXINE HYDROCHLORIDE [Concomitant]
     Dosage: UNK
     Dates: start: 20060127, end: 20060423
  3. CITALOPRAM [Concomitant]
     Dosage: UNK
     Dates: start: 20060428, end: 20060524
  4. LORATADINE [Concomitant]
     Dosage: UNK
     Dates: start: 20060428, end: 20060720
  5. AMOXICILLIN [Concomitant]
     Dosage: UNK
     Dates: start: 20060428
  6. RHINOCORT [Concomitant]
     Dosage: UNK
     Dates: start: 20060428
  7. CLARITIN [Concomitant]
  8. VICODIN [Concomitant]
     Indication: PAIN
  9. CELEXA [Concomitant]

REACTIONS (1)
  - Pulmonary embolism [Recovered/Resolved]
